FAERS Safety Report 5316174-4 (Version None)
Quarter: 2007Q2

REPORT INFORMATION
  Report Type: 
  Country: None (occurrence: None)
  Receive Date: 20070503
  Receipt Date: 20070423
  Transmission Date: 20071010
  Serious: Yes (Life-Threatening, Other)
  Sender: FDA-Public Use
  Company Number: IL-SHR-IL-2007-014083

PATIENT
  Age: 60 Year
  Sex: Male

DRUGS (2)
  1. MABCAMPATH [Suspect]
     Dosage: 6 CYCLES
     Route: 042
     Dates: start: 20050101
  2. FLUDARA [Suspect]
     Dosage: 25 MG/M2, 6 CYCLES
     Dates: start: 20030101

REACTIONS (4)
  - APLASIA PURE RED CELL [None]
  - MELANOMA RECURRENT [None]
  - METASTASES TO NERVOUS SYSTEM [None]
  - METASTATIC MALIGNANT MELANOMA [None]
